FAERS Safety Report 4973064-4 (Version None)
Quarter: 2006Q2

REPORT INFORMATION
  Report Type: 
  Country: None (occurrence: None)
  Receive Date: 20060410
  Receipt Date: 20060331
  Transmission Date: 20061013
  Serious: Yes (Other)
  Sender: FDA-Public Use
  Company Number: 2006046011

PATIENT
  Age: 56 Year
  Sex: Male
  Weight: 86.1834 kg

DRUGS (6)
  1. CELEBREX [Suspect]
     Indication: BACK DISORDER
     Dosage: 200 MG (200 MG, 1 IN 1 D), ORAL
     Route: 048
     Dates: end: 20040820
  2. ANTIHYPERTENSIVES (ANTIHYPERTENSIVES) [Concomitant]
  3. TOPROL-XL [Concomitant]
  4. ASPIRIN [Concomitant]
  5. XANAX [Concomitant]
  6. MOBIC [Concomitant]

REACTIONS (4)
  - CORONARY ARTERY OCCLUSION [None]
  - INTERVERTEBRAL DISC OPERATION [None]
  - MYOCARDIAL INFARCTION [None]
  - PAIN [None]
